FAERS Safety Report 25932967 (Version 2)
Quarter: 2025Q4

REPORT INFORMATION
  Report Type: Report from Study
  Country: US (occurrence: US)
  Receive Date: 20251017
  Receipt Date: 20251205
  Transmission Date: 20260117
  Serious: Yes (Death, Other)
  Sender: ACADIA PHARMACEUTICALS
  Company Number: US-ACADIA PHARMACEUTICALS INC.-ACA-2025-PIM-011290

PATIENT
  Sex: Female

DRUGS (7)
  1. NUPLAZID [Suspect]
     Active Substance: PIMAVANSERIN TARTRATE
     Indication: Parkinson^s disease
     Dosage: 34 MILLIGRAM, QD
     Route: 048
     Dates: start: 20200827
  2. AZELAIC ACID [Concomitant]
     Active Substance: AZELAIC ACID
     Dosage: MIS
  3. CARBIDOPA [Concomitant]
     Active Substance: CARBIDOPA
  4. MELATONIN [Concomitant]
     Active Substance: MELATONIN
  5. RASAGILINE [Concomitant]
     Active Substance: RASAGILINE
  6. SINEMET [Concomitant]
     Active Substance: CARBIDOPA\LEVODOPA
  7. XARELTO [Concomitant]
     Active Substance: RIVAROXABAN

REACTIONS (2)
  - Death [Fatal]
  - Urinary tract infection [Unknown]
